FAERS Safety Report 6221920-1 (Version None)
Quarter: 2009Q2

REPORT INFORMATION
  Report Type: 
  Country: None (occurrence: None)
  Receive Date: 20090609
  Receipt Date: 20090609
  Transmission Date: 20091009
  Serious: Yes (Death, Life-Threatening)
  Sender: FDA-Public Use
  Company Number: None

PATIENT
  Sex: Male

DRUGS (3)
  1. GEMCITABINE [Suspect]
     Indication: ACUTE MYELOID LEUKAEMIA
     Dosage: 33MG DAILY D1-5 IV
     Route: 042
     Dates: start: 20090422, end: 20090426
  2. CYTARABINE [Suspect]
     Indication: ACUTE MYELOID LEUKAEMIA
     Dosage: 33 MG DLY D1-5  SUB Q
     Route: 058
     Dates: start: 20090422, end: 20090426
  3. NEUPOGEN [Suspect]
     Indication: ACUTE MYELOID LEUKAEMIA
     Dosage: 300 UCG DLY1-5  SUB Q
     Route: 058
     Dates: start: 20090422, end: 20090426

REACTIONS (4)
  - GENERAL PHYSICAL HEALTH DETERIORATION [None]
  - NEUTROPHIL COUNT DECREASED [None]
  - PLATELET COUNT DECREASED [None]
  - PNEUMONIA [None]
